FAERS Safety Report 7740405-4 (Version None)
Quarter: 2011Q3

REPORT INFORMATION
  Report Type: 
  Country: None (occurrence: None)
  Receive Date: 20110909
  Receipt Date: 20110902
  Transmission Date: 20111222
  Serious: Yes (Other)
  Sender: FDA-Public Use
  Company Number: US-AMGEN-USASP2011045283

PATIENT
  Sex: Female

DRUGS (6)
  1. METHOTREXATE [Concomitant]
  2. ENBREL [Suspect]
     Indication: RHEUMATOID ARTHRITIS
     Dosage: 50 MG, QWK
     Dates: start: 19960101
  3. FOSAMAX [Concomitant]
  4. FOLIC ACID [Concomitant]
  5. ENBREL [Suspect]
     Indication: PSORIATIC ARTHROPATHY
  6. ENBREL [Suspect]
     Indication: PSORIASIS

REACTIONS (1)
  - MELANOCYTIC NAEVUS [None]
